FAERS Safety Report 8129561 (Version 4)
Quarter: 2013Q2

REPORT INFORMATION
  Report Type: Report from Study
  Country: CA (occurrence: CA)
  Receive Date: 20110909
  Receipt Date: 20130502
  Transmission Date: 20140414
  Serious: Yes (Other)
  Sender: FDA-Public Use
  Company Number: CA-BRISTOL-MYERS SQUIBB COMPANY-16037129

PATIENT
  Age: 60 Year
  Sex: Male
  Weight: 48.03 kg

DRUGS (3)
  1. ERBITUX [Suspect]
     Indication: HEAD AND NECK CANCER
     Dosage: INF : 5, LAST INF ON 07JUL11
     Route: 042
     Dates: start: 20110525, end: 20110707
  2. CISPLATIN [Suspect]
     Indication: HEAD AND NECK CANCER
     Dosage: INF : 2, LAST INF ON 23JUN11
     Route: 042
     Dates: start: 20110525, end: 20110623
  3. 5-FLUOROURACIL [Suspect]
     Indication: HEAD AND NECK CANCER
     Dosage: INF : 2, LAST INF ON 23JUN11
     Route: 042
     Dates: start: 20110525, end: 20110623

REACTIONS (1)
  - Pulmonary embolism [Recovered/Resolved]
